FAERS Safety Report 16206720 (Version 4)
Quarter: 2019Q2

REPORT INFORMATION
  Report Type: Report from Study
  Country: US (occurrence: US)
  Receive Date: 20190417
  Receipt Date: 20190529
  Transmission Date: 20190711
  Serious: Yes (Other)
  Sender: FDA-Public Use
  Company Number: US-AMGEN INC.-USASL2019055709

PATIENT
  Age: 65 Year
  Sex: Female

DRUGS (4)
  1. AIMOVIG [Suspect]
     Active Substance: ERENUMAB-AOOE
     Dosage: 140 MILLIGRAM, QMO
     Route: 058
     Dates: end: 20190317
  2. INDERAL [Concomitant]
     Active Substance: PROPRANOLOL HYDROCHLORIDE
     Dosage: UNK
  3. AIMOVIG [Suspect]
     Active Substance: ERENUMAB-AOOE
     Indication: MIGRAINE PROPHYLAXIS
     Dosage: 140 MILLIGRAM, QMO
     Route: 058
     Dates: start: 201808
  4. AIMOVIG [Suspect]
     Active Substance: ERENUMAB-AOOE
     Dosage: 140 MILLIGRAM, QMO
     Route: 058

REACTIONS (17)
  - Injection site pain [Recovered/Resolved]
  - Migraine [Recovering/Resolving]
  - Muscle spasms [Unknown]
  - Sleep disorder due to general medical condition, insomnia type [Unknown]
  - Angioedema [Unknown]
  - Colitis [Recovering/Resolving]
  - Constipation [Recovering/Resolving]
  - Irritable bowel syndrome [Recovering/Resolving]
  - Hypersomnia [Unknown]
  - Therapeutic product effect decreased [Unknown]
  - Injection site pruritus [Recovered/Resolved]
  - Fatigue [Unknown]
  - Injection site swelling [Recovered/Resolved]
  - Injection site bruising [Unknown]
  - Injection site extravasation [Unknown]
  - Injection site erythema [Recovered/Resolved]
  - Injection site haemorrhage [Recovered/Resolved]

NARRATIVE: CASE EVENT DATE: 2018
